FAERS Safety Report 4397674-0 (Version None)
Quarter: 2004Q3

REPORT INFORMATION
  Report Type: 
  Country: None (occurrence: None)
  Receive Date: 20040712
  Receipt Date: 20040630
  Transmission Date: 20050211
  Serious: Yes (Hospitalization)
  Sender: FDA-Public Use
  Company Number: 6009399F

PATIENT
  Age: 55 Year
  Sex: Male

DRUGS (2)
  1. NIASPAN [Suspect]
     Indication: DYSLIPIDAEMIA
     Dosage: 750 MG QD PO
     Route: 048
     Dates: start: 20040621, end: 20040622
  2. ATORVASTATIN CALCIUM [Concomitant]

REACTIONS (8)
  - CHILLS [None]
  - DIZZINESS [None]
  - DIZZINESS POSTURAL [None]
  - FEELING HOT [None]
  - GENERALISED ERYTHEMA [None]
  - GLOSSODYNIA [None]
  - PALLOR [None]
  - TREMOR [None]
